FAERS Safety Report 8647862 (Version 3)
Quarter: 2015Q1

REPORT INFORMATION
  Report Type: Report from Study
  Country: US (occurrence: US)
  Receive Date: 20120703
  Receipt Date: 20150317
  Transmission Date: 20150721
  Serious: Yes (Death)
  Sender: FDA-Public Use
  Company Number: US-ROCHE-1083439

PATIENT
  Sex: Female
  Weight: 59.02 kg

DRUGS (7)
  1. ALIMTA [Concomitant]
     Active Substance: PEMETREXED DISODIUM
     Route: 042
  2. HEPARIN [Concomitant]
     Active Substance: HEPARIN SODIUM
  3. DECADRON [Concomitant]
     Active Substance: DEXAMETHASONE
  4. ZOFRAN [Concomitant]
     Active Substance: ONDANSETRON HYDROCHLORIDE
  5. TARCEVA [Suspect]
     Active Substance: ERLOTINIB HYDROCHLORIDE
     Indication: LUNG NEOPLASM MALIGNANT
     Route: 048
     Dates: start: 20120521, end: 20120607
  6. AVASTIN [Suspect]
     Active Substance: BEVACIZUMAB
     Indication: LUNG NEOPLASM MALIGNANT
     Route: 042
     Dates: start: 20120124, end: 20120419
  7. BENADRYL [Concomitant]
     Active Substance: DIPHENHYDRAMINE HYDROCHLORIDE

REACTIONS (3)
  - Cardio-respiratory arrest [Fatal]
  - Cerebrovascular accident [Fatal]
  - Lung neoplasm malignant [Fatal]
